FAERS Safety Report 9815349 (Version 1)
Quarter: 2014Q1

REPORT INFORMATION
  Report Type: Spontaneous
  Country: BR (occurrence: BR)
  Receive Date: 20140114
  Receipt Date: 20140114
  Transmission Date: 20141002
  Serious: Yes (Other)
  Sender: FDA-Public Use
  Company Number: BR-ASTRAZENECA-2014SE01124

PATIENT
  Sex: Male

DRUGS (8)
  1. ATENOLOL [Suspect]
     Indication: BLOOD PRESSURE ABNORMAL
     Route: 048
  2. OMEPRAZOLE [Suspect]
     Indication: GASTRIC DISORDER
     Route: 048
  3. BRILINTA [Suspect]
     Route: 048
     Dates: start: 201304
  4. SIMVASTATIN [Concomitant]
     Indication: BLOOD CHOLESTEROL ABNORMAL
  5. SUSTRATE [Concomitant]
     Indication: CHEST PAIN
  6. DONAREN [Concomitant]
     Indication: DEPRESSION
  7. AAS INFANTIL [Concomitant]
  8. XANTONOLOL [Concomitant]

REACTIONS (2)
  - Coronary artery restenosis [Not Recovered/Not Resolved]
  - Liver disorder [Recovered/Resolved]
